FAERS Safety Report 5932085-5 (Version None)
Quarter: 2008Q4

REPORT INFORMATION
  Report Type: 
  Country: None (occurrence: None)
  Receive Date: 20081027
  Receipt Date: 20081022
  Transmission Date: 20090506
  Serious: Yes (Hospitalization)
  Sender: FDA-Public Use
  Company Number: US-MERCK-0810USA04289

PATIENT
  Age: 75 Year
  Sex: Female

DRUGS (2)
  1. INVANZ [Suspect]
     Indication: ULCER
     Route: 051
  2. INVANZ [Suspect]
     Indication: OSTEOMYELITIS
     Route: 051

REACTIONS (3)
  - FALL [None]
  - HALLUCINATION [None]
  - HIP FRACTURE [None]
